FAERS Safety Report 8874882 (Version 2)
Quarter: 2013Q1

REPORT INFORMATION
  Report Type: Spontaneous
  Country: US (occurrence: US)
  Receive Date: 20121023
  Receipt Date: 20130128
  Transmission Date: 20140127
  Serious: Yes (Life-Threatening, Hospitalization, Other)
  Sender: FDA-Public Use
  Company Number: US-ASTRAZENECA-2012SE80320

PATIENT
  Age: 60 Year
  Sex: Male

DRUGS (3)
  1. CRESTOR [Suspect]
     Indication: BLOOD CHOLESTEROL INCREASED
     Route: 048
  2. UNSPECIFIED INGREDIENT [Suspect]
     Indication: EPILEPSY
     Route: 065
  3. DILANTIN [Suspect]
     Indication: CONVULSION
     Route: 065

REACTIONS (8)
  - Overdose [Unknown]
  - Apparent death [Unknown]
  - Epilepsy [Unknown]
  - Convulsion [Unknown]
  - Visual impairment [Unknown]
  - Vision blurred [Unknown]
  - Blood cholesterol increased [Recovered/Resolved]
  - Adverse event [Unknown]
